FAERS Safety Report 5721725-1 (Version None)
Quarter: 2008Q2

REPORT INFORMATION
  Report Type: 
  Country: None (occurrence: None)
  Receive Date: 20080429
  Receipt Date: 20070402
  Transmission Date: 20081010
  Serious: No
  Sender: FDA-Public Use
  Company Number: US-ASTRAZENECA-2007UW06555

PATIENT
  Age: 37 Year
  Sex: Female
  Weight: 61.2 kg

DRUGS (2)
  1. NEXIUM [Suspect]
     Route: 048
     Dates: start: 20070201
  2. VITAMIN CAP [Concomitant]

REACTIONS (1)
  - TOOTH DISCOLOURATION [None]
